FAERS Safety Report 8257257-9 (Version None)
Quarter: 2012Q2

REPORT INFORMATION
  Report Type: 
  Country: None (occurrence: None)
  Receive Date: 20120403
  Receipt Date: 20120323
  Transmission Date: 20120825
  Serious: Yes (Hospitalization)
  Sender: FDA-Public Use
  Company Number: AU-FRI-1000029536

PATIENT
  Sex: Male

DRUGS (4)
  1. CITALOPRAM HYDROBROMIDE [Suspect]
     Dosage: 20 MG
     Route: 048
     Dates: end: 20120207
  2. MESALAMINE [Concomitant]
  3. MIRTAZAPINE [Concomitant]
  4. METOCLOPRAMIDE HYDROCHLORIDE [Suspect]
     Dosage: 10 MG
     Dates: start: 20120128, end: 20120128

REACTIONS (3)
  - BACK PAIN [None]
  - VOMITING [None]
  - VENTRICULAR FIBRILLATION [None]
